FAERS Safety Report 5275475-9 (Version None)
Quarter: 2007Q1

REPORT INFORMATION
  Report Type: 
  Country: None (occurrence: None)
  Receive Date: 20070326
  Receipt Date: 20070315
  Transmission Date: 20070707
  Serious: Yes (Death)
  Sender: FDA-Public Use
  Company Number: JP-ROCHE-486820

PATIENT
  Age: 83 Year
  Sex: Female

DRUGS (12)
  1. TAMIFLU [Suspect]
     Indication: INFLUENZA
     Route: 048
     Dates: start: 20070222
  2. ANTIDIABETIC DRUG NOS [Concomitant]
  3. ACETAMINOPHEN [Concomitant]
  4. CALONAL [Concomitant]
     Dosage: GENERIC REPORTED AS ACETAMINOPHEN. FORM REPORTED AS ORAL FORMULATION(NOS).
     Route: 048
     Dates: start: 20070222
  5. EUGLUCON [Concomitant]
     Route: 048
     Dates: end: 20070225
  6. KINEDAK [Concomitant]
     Route: 048
     Dates: end: 20070225
  7. TERAZOSIN HYDROCHLORIDE [Concomitant]
     Dosage: DRUG NAME REPORTED AS VASOMET.
     Route: 048
     Dates: end: 20070225
  8. MEVALOTIN [Concomitant]
     Dosage: GENERIC REPORTED AS PRAVASTATIN SODIUM.
     Route: 048
     Dates: end: 20070225
  9. GASMOTIN [Concomitant]
     Dosage: GENERIC REPORTED AS MOSAPRIDE CITRATE.
     Route: 048
     Dates: end: 20070225
  10. RIZE [Concomitant]
     Route: 048
     Dates: end: 20070225
  11. PANTOSIN [Concomitant]
     Route: 048
     Dates: end: 20070225
  12. MECOBALAMIN [Concomitant]
     Route: 048
     Dates: end: 20070225

REACTIONS (1)
  - CARDIO-RESPIRATORY ARREST [None]
